FAERS Safety Report 7480894-6 (Version None)
Quarter: 2011Q2

REPORT INFORMATION
  Report Type: 
  Country: None (occurrence: None)
  Receive Date: 20110516
  Receipt Date: 20110304
  Transmission Date: 20111010
  Serious: Yes (Hospitalization)
  Sender: FDA-Public Use
  Company Number: US-BAYER-2011-022460

PATIENT
  Age: 81 Year
  Sex: Female

DRUGS (1)
  1. NEXAVAR [Suspect]
     Indication: HEPATIC NEOPLASM MALIGNANT
     Dosage: 200 MG, BID
     Dates: start: 20110225, end: 20110311

REACTIONS (3)
  - HYPERTENSION [None]
  - BALANCE DISORDER [None]
  - MUSCULAR WEAKNESS [None]
